FAERS Safety Report 12840436 (Version 1)
Quarter: 2016Q4

REPORT INFORMATION
  Report Type: Spontaneous
  Country: US (occurrence: US)
  Receive Date: 20161012
  Receipt Date: 20161012
  Transmission Date: 20170207
  Serious: No
  Sender: FDA-Public Use
  Company Number: US-JUBILANT CADISTA PHARMACEUTICALS-2016JUB00235

PATIENT
  Age: 73 Year
  Sex: Male
  Weight: 76.19 kg

DRUGS (2)
  1. PREDNISONE. [Suspect]
     Active Substance: PREDNISONE
     Indication: JOINT SWELLING
     Dosage: 1 TABLETS, 2X/DAY
     Route: 048
     Dates: start: 20160606, end: 20160612
  2. PREDNISONE. [Suspect]
     Active Substance: PREDNISONE
     Dosage: 1 TABLETS, 1X/DAY
     Route: 048
     Dates: start: 20160613

REACTIONS (1)
  - Drug effect incomplete [Not Recovered/Not Resolved]

NARRATIVE: CASE EVENT DATE: 20160608
